FAERS Safety Report 8238645-3 (Version None)
Quarter: 2012Q1

REPORT INFORMATION
  Report Type: 
  Country: None (occurrence: None)
  Receive Date: 20120323
  Receipt Date: 20120307
  Transmission Date: 20120608
  Serious: Yes (Death)
  Sender: FDA-Public Use
  Company Number: 2012VX001227

PATIENT

DRUGS (6)
  1. FLUOROURACIL [Suspect]
     Indication: HYPOPHARYNGEAL CANCER
     Dosage: 1000 MG/M**2;
  2. FLUOROURACIL [Suspect]
     Indication: LARYNGEAL CANCER
     Dosage: 1000 MG/M**2;
  3. THERAPEUTIC RADIOPHARMACEUTICALS (THERAPEUTIC RADIOPHARMACEUTICALS) [Suspect]
     Indication: HYPOPHARYNGEAL CANCER
  4. THERAPEUTIC RADIOPHARMACEUTICALS (THERAPEUTIC RADIOPHARMACEUTICALS) [Suspect]
     Indication: LARYNGEAL CANCER
  5. CISPLATIN [Suspect]
     Indication: HYPOPHARYNGEAL CANCER
     Dosage: 75 MG/M**2;Q3W; , 100 MG/M**2;
  6. CISPLATIN [Suspect]
     Indication: LARYNGEAL CANCER
     Dosage: 75 MG/M**2;Q3W; , 100 MG/M**2;

REACTIONS (1)
  - MYOCARDIAL INFARCTION [None]
